FAERS Safety Report 12859857 (Version 1)
Quarter: 2016Q4

REPORT INFORMATION
  Report Type: Spontaneous
  Country: US (occurrence: US)
  Receive Date: 20161018
  Receipt Date: 20161018
  Transmission Date: 20170207
  Serious: No
  Sender: FDA-Public Use
  Company Number: US-CELGENEUS-USA-2016103505

PATIENT
  Sex: Female
  Weight: 92.62 kg

DRUGS (5)
  1. DAPSONE. [Concomitant]
     Active Substance: DAPSONE
     Indication: SYSTEMIC LUPUS ERYTHEMATOSUS
     Route: 065
  2. THALOMID [Suspect]
     Active Substance: THALIDOMIDE
     Indication: SYSTEMIC LUPUS ERYTHEMATOSUS
     Route: 048
     Dates: start: 201501
  3. VITAMIN D [Concomitant]
     Active Substance: CHOLECALCIFEROL
     Indication: PRODUCT USED FOR UNKNOWN INDICATION
     Route: 065
     Dates: start: 20161006
  4. THALOMID [Suspect]
     Active Substance: THALIDOMIDE
     Dosage: 50MG-100MG
     Route: 048
     Dates: start: 201510
  5. THALOMID [Suspect]
     Active Substance: THALIDOMIDE
     Route: 048
     Dates: start: 20160712

REACTIONS (2)
  - Weight decreased [Unknown]
  - Vitamin D decreased [Unknown]
